FAERS Safety Report 8782061 (Version 1)
Quarter: 2012Q4

REPORT INFORMATION
  Report Type: 
  Country: US (occurrence: US)
  Receive Date: 20120913
  Receipt Date: 20120913
  Transmission Date: 20130627
  Serious: No
  Sender: FDA-Public Use
  Company Number: US-VERTEX PHARMACEUTICAL INC.-2012-020120

PATIENT
  Age: 52 Year
  Sex: Female
  Weight: 101 kg

DRUGS (3)
  1. INCIVEK [Suspect]
     Indication: HEPATITIS C
     Dosage: 750 mg, UNK
     Route: 048
     Dates: start: 20120821
  2. RIBAVIRIN [Concomitant]
     Indication: HEPATITIS C
     Dosage: 600 mg, bid
     Route: 048
     Dates: start: 20120821
  3. PEGYLATED INTERFERON ALFA-2A [Concomitant]
     Indication: HEPATITIS C
     Dosage: UNK
     Dates: start: 20120820

REACTIONS (2)
  - Tremor [Recovered/Resolved]
  - Vomiting [Recovered/Resolved]
